FAERS Safety Report 22174177 (Version 8)
Quarter: 2023Q2

REPORT INFORMATION
  Report Type: Report from Study
  Country: CN (occurrence: CN)
  Receive Date: 20230405
  Receipt Date: 20230620
  Transmission Date: 20230721
  Serious: Yes (Hospitalization)
  Sender: FDA-Public Use
  Company Number: CN-DSJP-DSJ-2023-112524

PATIENT
  Age: 66 Year
  Sex: Female
  Weight: 55 kg

DRUGS (21)
  1. EDOXABAN [Suspect]
     Active Substance: EDOXABAN
     Indication: Atrial fibrillation
     Dosage: 30 MG, QD
     Route: 048
     Dates: start: 20220626
  2. DIGOXIN [Concomitant]
     Active Substance: DIGOXIN
     Indication: Atrial fibrillation
     Dosage: 0.5 DF, QD
     Route: 048
     Dates: end: 20230501
  3. DIGOXIN [Concomitant]
     Active Substance: DIGOXIN
     Indication: Cardiac failure congestive
     Dosage: 0.125 MG, DAILY
     Route: 048
     Dates: start: 20230501
  4. AMBRISENTAN [Concomitant]
     Active Substance: AMBRISENTAN
     Indication: Pulmonary hypertension
     Dosage: 5 MG, DAILY
     Route: 048
  5. METFORMIN HYDROCHLORIDE [Concomitant]
     Active Substance: METFORMIN HYDROCHLORIDE
     Indication: Type 2 diabetes mellitus
     Dosage: 250 MG, DAILY
     Route: 048
  6. GLIMEPIRIDE [Concomitant]
     Active Substance: GLIMEPIRIDE
     Indication: Type 2 diabetes mellitus
     Dosage: 2 MG, DAILY
     Route: 048
  7. TORSEMIDE [Concomitant]
     Active Substance: TORSEMIDE
     Indication: Cardiac failure congestive
     Dosage: 10 MG, DAILY
     Route: 048
     Dates: end: 202305
  8. TORSEMIDE [Concomitant]
     Active Substance: TORSEMIDE
     Dosage: 40 MG, BID
     Route: 048
     Dates: start: 202305
  9. BUMETANIDE [Concomitant]
     Active Substance: BUMETANIDE
     Indication: Cardiac failure congestive
     Dosage: 1 DF, DAILY
     Route: 048
  10. QILI QIANGXIN JIAONANG [Concomitant]
     Indication: Cardiac failure congestive
     Dosage: 4 DF, TID
     Route: 048
  11. METOPROLOL TARTRATE [Concomitant]
     Active Substance: METOPROLOL TARTRATE
     Indication: Atrial fibrillation
     Dosage: 6.25 MG, BID
     Route: 048
     Dates: start: 202206
  12. POTASSIUM CHLORIDE [Concomitant]
     Active Substance: POTASSIUM CHLORIDE
     Indication: Cardiac failure congestive
     Dosage: 500 MG, BID
     Route: 048
  13. BETAHISTINE MESILATE [Concomitant]
     Active Substance: BETAHISTINE MESILATE
     Indication: Dizziness
     Dosage: 6 MG, TID
     Route: 048
  14. MOSAPRIDE CITRATE [Concomitant]
     Active Substance: MOSAPRIDE CITRATE
     Indication: Prophylaxis
     Dosage: 5 MG, TID
     Route: 048
  15. UNSPECIFIED INGREDIENT [Concomitant]
     Active Substance: UNSPECIFIED INGREDIENT
     Indication: Atrial fibrillation
     Dosage: UNK, BID
     Route: 065
     Dates: start: 202206
  16. SACUBITRIL\VALSARTAN [Concomitant]
     Active Substance: SACUBITRIL\VALSARTAN
     Indication: Cardiac failure congestive
     Dosage: 50 MG, BID
     Route: 048
     Dates: start: 20230501
  17. DAPAGLIFLOZIN [Concomitant]
     Active Substance: DAPAGLIFLOZIN
     Indication: Type 2 diabetes mellitus
     Dosage: 10 MG, DAILY
     Route: 048
     Dates: start: 20230501
  18. INSULIN ASPART [Concomitant]
     Active Substance: INSULIN ASPART
     Indication: Type 2 diabetes mellitus
     Dosage: 10 IU, TID
     Route: 058
     Dates: start: 20230501
  19. VERICIGUAT [Concomitant]
     Active Substance: VERICIGUAT
     Indication: Cardiac failure congestive
     Dosage: 1 DF DAILY
     Route: 048
     Dates: start: 202305
  20. MAI ZHI LING [Concomitant]
     Indication: Peripheral swelling
     Dosage: 300 MG, BID
     Route: 048
  21. PANTOPRAZOLE SODIUM [Concomitant]
     Active Substance: PANTOPRAZOLE SODIUM
     Indication: Prophylaxis
     Dosage: 40 MG, DAILY
     Route: 048
     Dates: start: 20230501

REACTIONS (3)
  - Vascular pseudoaneurysm [Recovered/Resolved]
  - Cardiac failure [Recovering/Resolving]
  - Cardiac failure [Recovering/Resolving]

NARRATIVE: CASE EVENT DATE: 20230328
